FAERS Safety Report 8285676-3 (Version None)
Quarter: 2012Q2

REPORT INFORMATION
  Report Type: 
  Country: None (occurrence: None)
  Receive Date: 20120413
  Receipt Date: 20120409
  Transmission Date: 20120825
  Serious: Yes (Other)
  Sender: FDA-Public Use
  Company Number: GB-BAXTER-2012BH002543

PATIENT
  Age: 78 Year
  Sex: Male

DRUGS (1)
  1. KIOVIG [Suspect]
     Indication: CEREBRAL SARCOIDOSIS
     Route: 042

REACTIONS (1)
  - BORRELIA TEST POSITIVE [None]
